FAERS Safety Report 23369778 (Version 2)
Quarter: 2024Q1

REPORT INFORMATION
  Report Type: Spontaneous
  Country: JP (occurrence: JP)
  Receive Date: 20240105
  Receipt Date: 20240115
  Transmission Date: 20240410
  Serious: Yes (Hospitalization, Other)
  Sender: FDA-Public Use
  Company Number: JP-TAKEDA-2024TUS000725

PATIENT
  Age: 15 Month
  Sex: Male

DRUGS (2)
  1. HUMAN IMMUNOGLOBULIN G [Suspect]
     Active Substance: HUMAN IMMUNOGLOBULIN G
     Indication: Kawasaki^s disease
     Dosage: UNK
     Route: 042
  2. FLURBIPROFEN [Concomitant]
     Active Substance: FLURBIPROFEN
     Dosage: 4 MILLIGRAM/KILOGRAM, QD
     Route: 048

REACTIONS (2)
  - Disseminated intravascular coagulation [Unknown]
  - Pleural effusion [Unknown]
